FAERS Safety Report 7884122-9 (Version None)
Quarter: 2011Q4

REPORT INFORMATION
  Report Type: 
  Country: None (occurrence: None)
  Receive Date: 20111102
  Receipt Date: 20111019
  Transmission Date: 20120403
  Serious: Yes (Hospitalization)
  Sender: FDA-Public Use
  Company Number: US-GLAXOSMITHKLINE-A0729283A

PATIENT
  Age: 65 Year
  Sex: Female
  Weight: 59.1 kg

DRUGS (3)
  1. GLUCOPHAGE [Concomitant]
     Dates: start: 19990601, end: 19990601
  2. METOPROLOL TARTRATE [Concomitant]
     Dates: start: 20060201
  3. AVANDIA [Suspect]
     Indication: TYPE 2 DIABETES MELLITUS
     Dosage: 4MG PER DAY
     Route: 048
     Dates: start: 19990601, end: 20070701

REACTIONS (1)
  - MYOCARDIAL INFARCTION [None]
